FAERS Safety Report 5946224-3 (Version None)
Quarter: 2008Q4

REPORT INFORMATION
  Report Type: 
  Country: None (occurrence: None)
  Receive Date: 20081106
  Receipt Date: 20081028
  Transmission Date: 20090506
  Serious: Yes (Death)
  Sender: FDA-Public Use
  Company Number: CERZ-1000403

PATIENT
  Age: 9 Year
  Sex: Female

DRUGS (1)
  1. CEREZYME [Suspect]
     Indication: GAUCHER'S DISEASE
     Dosage: 1600 IU, INTRAVENOUS
     Route: 042
     Dates: start: 19991215, end: 20081014

REACTIONS (5)
  - BRONCHITIS [None]
  - DEAFNESS NEUROSENSORY [None]
  - EPILEPSY [None]
  - NASOPHARYNGITIS [None]
  - STREPTOCOCCAL INFECTION [None]
